FAERS Safety Report 14278542 (Version 3)
Quarter: 2018Q1

REPORT INFORMATION
  Report Type: Spontaneous
  Country: AT (occurrence: AT)
  Receive Date: 20171211
  Receipt Date: 20180227
  Transmission Date: 20180508
  Serious: Yes (Life-Threatening, Hospitalization, Other)
  Sender: FDA-Public Use
  Company Number: AT-OTSUKA-2017_014727

PATIENT
  Age: 43 Year
  Sex: Male

DRUGS (4)
  1. LITHIUM. [Suspect]
     Active Substance: LITHIUM
     Dosage: 1800 MG, QD
     Route: 065
     Dates: end: 20170318
  2. LITHIUM. [Suspect]
     Active Substance: LITHIUM
     Indication: PRODUCT USED FOR UNKNOWN INDICATION
     Dosage: 900 MG, QD
     Route: 065
  3. QUETIAPIN [Suspect]
     Active Substance: QUETIAPINE
     Indication: PRODUCT USED FOR UNKNOWN INDICATION
     Dosage: 900 MG, QD
     Route: 048
     Dates: start: 20170313, end: 20170315
  4. ABILIFY [Suspect]
     Active Substance: ARIPIPRAZOLE
     Indication: PRODUCT USED FOR UNKNOWN INDICATION
     Dosage: 10 MG, QD
     Route: 065
     Dates: start: 20170314, end: 20170318

REACTIONS (11)
  - Myoglobinuria [Not Recovered/Not Resolved]
  - Glomerular filtration rate decreased [Not Recovered/Not Resolved]
  - Hyperthermia [Recovered/Resolved]
  - Condition aggravated [Not Recovered/Not Resolved]
  - Blood creatinine increased [Not Recovered/Not Resolved]
  - Blood creatine phosphokinase increased [Not Recovered/Not Resolved]
  - Toxicity to various agents [Recovered/Resolved]
  - Therapy cessation [Unknown]
  - Drug level increased [Recovered/Resolved]
  - Pneumonia aspiration [Unknown]
  - Diabetes insipidus [Recovered/Resolved]

NARRATIVE: CASE EVENT DATE: 20170317
